FAERS Safety Report 9666249 (Version 1)
Quarter: 2013Q4

REPORT INFORMATION
  Report Type: Spontaneous
  Country: US (occurrence: None)
  Receive Date: 20131101
  Receipt Date: 20131101
  Transmission Date: 20140711
  Serious: No
  Sender: FDA-Public Use
  Company Number: None

PATIENT
  Age: 36 Year
  Sex: Male

DRUGS (1)
  1. CIMZIA [Suspect]
     Dosage: INJECT 2 SYRINGES SUBCUTANEOUSLY ONCE A MONTH AS DIRECTED; 2 YRS PER PT, NEW TO ACCREDO

REACTIONS (1)
  - Skin cancer [None]
